FAERS Safety Report 18441752 (Version 1)
Quarter: 2020Q4

REPORT INFORMATION
  Report Type: Spontaneous
  Country: BR (occurrence: BR)
  Receive Date: 20201029
  Receipt Date: 20201029
  Transmission Date: 20210114
  Serious: Yes (Other)
  Sender: FDA-Public Use
  Company Number: BR-FERRINGPH-2020FE07444

PATIENT
  Age: 9 Year
  Sex: Female

DRUGS (1)
  1. DDAVP [Suspect]
     Active Substance: DESMOPRESSIN ACETATE
     Indication: PRODUCT USED FOR UNKNOWN INDICATION
     Route: 045

REACTIONS (4)
  - Cerebral atrophy [Not Recovered/Not Resolved]
  - Pyrexia [Not Recovered/Not Resolved]
  - Out of specification product use [Unknown]
  - Recalled product administered [Unknown]
